FAERS Safety Report 21039391 (Version 3)
Quarter: 2022Q3

REPORT INFORMATION
  Report Type: Spontaneous
  Country: IT (occurrence: None)
  Receive Date: 20220704
  Receipt Date: 20220815
  Transmission Date: 20221027
  Serious: Yes (Life-Threatening, Hospitalization, Other)
  Sender: FDA-Public Use
  Company Number: 2022A239315

PATIENT
  Age: 27917 Day
  Sex: Female

DRUGS (13)
  1. DAPAGLIFLOZIN [Suspect]
     Active Substance: DAPAGLIFLOZIN
     Dosage: UNKNOWN
     Route: 048
  2. ASPIRIN [Concomitant]
     Active Substance: ASPIRIN
     Dosage: 100.0MG UNKNOWN
  3. TICAGRELOR [Concomitant]
     Active Substance: TICAGRELOR
  4. PANTOPRAZOLE [Concomitant]
     Active Substance: PANTOPRAZOLE
     Dosage: 40.0MG UNKNOWN
  5. ATORVASTATIN [Concomitant]
     Active Substance: ATORVASTATIN
     Dosage: 80.0MG UNKNOWN
  6. CARVEDILOL [Concomitant]
     Active Substance: CARVEDILOL
  7. VALSARTAN [Concomitant]
     Active Substance: VALSARTAN
     Dosage: 40.0MG UNKNOWN
  8. FUROSEMIDE [Concomitant]
     Active Substance: FUROSEMIDE
  9. FUROSEMIDE [Concomitant]
     Active Substance: FUROSEMIDE
  10. SPIRONOLACTONE [Concomitant]
     Active Substance: SPIRONOLACTONE
     Dosage: 25.0MG UNKNOWN
  11. LEVOTHYROXINE [Concomitant]
     Active Substance: LEVOTHYROXINE
     Dosage: 125.0UG UNKNOWN
  12. ACTRAPID [Concomitant]
     Active Substance: INSULIN HUMAN
  13. LANTUS [Concomitant]
     Active Substance: INSULIN GLARGINE
     Dosage: 6.0IU UNKNOWN

REACTIONS (3)
  - Catatonia [Recovered/Resolved]
  - Coma [Recovered/Resolved]
  - Diabetic ketoacidosis [Recovered/Resolved]

NARRATIVE: CASE EVENT DATE: 20220623
